FAERS Safety Report 5135164-8 (Version None)
Quarter: 2006Q4

REPORT INFORMATION
  Report Type: 
  Country: None (occurrence: None)
  Receive Date: 20060831
  Receipt Date: 20060418
  Transmission Date: 20070319
  Serious: Yes (Other)
  Sender: FDA-Public Use
  Company Number: 2005062903

PATIENT
  Age: 65 Year
  Sex: Male
  Weight: 77.1115 kg

DRUGS (3)
  1. DETROL LA [Suspect]
     Indication: URINARY INCONTINENCE
     Dosage: 4 MG (4 MG, 1 IN 1 D) , ORAL
     Route: 048
     Dates: start: 20050223, end: 20050225
  2. LESCOL XL [Concomitant]
  3. WELLBUTRIN XL [Concomitant]

REACTIONS (16)
  - CHAPPED LIPS [None]
  - CHEILITIS [None]
  - DISCOMFORT [None]
  - DRY MOUTH [None]
  - ERYTHEMA [None]
  - HYPERAESTHESIA [None]
  - HYPERSENSITIVITY [None]
  - LIP PAIN [None]
  - LIP SWELLING [None]
  - NAIL DISORDER [None]
  - OEDEMA PERIPHERAL [None]
  - ORAL PAIN [None]
  - PALMAR ERYTHEMA [None]
  - PRURITUS [None]
  - SKIN EXFOLIATION [None]
  - SWOLLEN TONGUE [None]
